FAERS Safety Report 11128528 (Version 1)
Quarter: 2015Q2

REPORT INFORMATION
  Report Type: Spontaneous
  Country: SE (occurrence: SE)
  Receive Date: 20150521
  Receipt Date: 20150521
  Transmission Date: 20150821
  Serious: Yes (Death, Other)
  Sender: FDA-Public Use
  Company Number: SE-BANPHARM-20153915

PATIENT
  Age: 5 Year
  Sex: Female

DRUGS (2)
  1. VALPROIC ACID UNKNOWN PRODUCT [Suspect]
     Active Substance: VALPROIC ACID
     Indication: EPILEPSY
  2. IBUPROFEN UNKNOWN PRODUCT [Suspect]
     Active Substance: IBUPROFEN
     Indication: PYREXIA
     Dosage: NORMAL DOSE,

REACTIONS (4)
  - Neurotoxicity [Not Recovered/Not Resolved]
  - Brain oedema [Fatal]
  - Ammonia increased [Fatal]
  - Acute hepatic failure [Fatal]
